FAERS Safety Report 8155464-7 (Version None)
Quarter: 2012Q1

REPORT INFORMATION
  Report Type: 
  Country: None (occurrence: None)
  Receive Date: 20120215
  Receipt Date: 20120209
  Transmission Date: 20120608
  Serious: Yes (Hospitalization, Other)
  Sender: FDA-Public Use
  Company Number: WAES 1202USA01509

PATIENT
  Age: 46 Year
  Sex: Female

DRUGS (9)
  1. ASPIRIN [Concomitant]
  2. LANTUS [Concomitant]
  3. HYDRODIURIL [Suspect]
     Indication: PRODUCT USED FOR UNKNOWN INDICATION
     Dosage: UNK;PO
     Route: 048
  4. SPIRONOLACTONE [Suspect]
     Indication: PRODUCT USED FOR UNKNOWN INDICATION
     Dosage: UNK;UNK
  5. PRINIVIL [Suspect]
     Indication: PRODUCT USED FOR UNKNOWN INDICATION
     Dosage: UNK;PO
     Route: 048
  6. BLINDED THERAPY [Suspect]
     Indication: TYPE 2 DIABETES MELLITUS
     Dosage: UNK;UNK
     Dates: start: 20100826
  7. CELEBREX [Suspect]
     Indication: PRODUCT USED FOR UNKNOWN INDICATION
     Dosage: UNK;UNK
  8. NOVORAPID [Concomitant]
  9. METFORMIN HCL [Concomitant]

REACTIONS (4)
  - GASTROENTERITIS VIRAL [None]
  - RENAL FAILURE ACUTE [None]
  - DEHYDRATION [None]
  - ENTERITIS [None]
